FAERS Safety Report 11534432 (Version 1)
Quarter: 2015Q3

REPORT INFORMATION
  Report Type: Spontaneous
  Country: US (occurrence: None)
  Receive Date: 20150918
  Receipt Date: 20150918
  Transmission Date: 20151125
  Serious: Yes (Hospitalization)
  Sender: FDA-Public Use
  Company Number: None

PATIENT
  Age: 68 Year
  Sex: Male
  Weight: 113 kg

DRUGS (16)
  1. METHADONE [Suspect]
     Active Substance: METHADONE HYDROCHLORIDE
  2. TRAZODONE [Concomitant]
     Active Substance: TRAZODONE HYDROCHLORIDE
  3. SIMVASTATIN. [Concomitant]
     Active Substance: SIMVASTATIN
  4. FLUTICASONE [Concomitant]
     Active Substance: FLUTICASONE\FLUTICASONE PROPIONATE
  5. TESTOSTERONE. [Concomitant]
     Active Substance: TESTOSTERONE
  6. CYPIONATE [Concomitant]
     Active Substance: ESTRADIOL CYPIONATE
  7. VITAMIN B12 [Concomitant]
     Active Substance: CYANOCOBALAMIN
  8. ALBUTEROL. [Concomitant]
     Active Substance: ALBUTEROL
  9. FLUOXETINE [Concomitant]
     Active Substance: FLUOXETINE\FLUOXETINE HYDROCHLORIDE
  10. MELATONIN [Concomitant]
     Active Substance: MELATONIN
  11. FUROSEMIDE. [Concomitant]
     Active Substance: FUROSEMIDE
  12. ALPHA LIPOIC ACID [Concomitant]
     Active Substance: .ALPHA.-LIPOIC ACID
  13. VENLAFAXINE ER [Concomitant]
     Active Substance: VENLAFAXINE HYDROCHLORIDE
  14. AMLODIPINE [Concomitant]
     Active Substance: AMLODIPINE BESYLATE
  15. RAMIPRIL. [Concomitant]
     Active Substance: RAMIPRIL
  16. ALPRAZOLAM. [Concomitant]
     Active Substance: ALPRAZOLAM

REACTIONS (5)
  - Chest pain [None]
  - Dyspnoea [None]
  - Back pain [None]
  - Muscle strain [None]
  - Pneumonia [None]

NARRATIVE: CASE EVENT DATE: 20150911
